FAERS Safety Report 19164433 (Version 4)
Quarter: 2025Q4

REPORT INFORMATION
  Report Type: Report from Study
  Country: CA (occurrence: None)
  Receive Date: 20210421
  Receipt Date: 20251121
  Transmission Date: 20260118
  Serious: Yes (Other)
  Sender: APOTEX
  Company Number: CA-APOTEX-2021AP009288

PATIENT
  Age: 41 Year
  Sex: Male
  Weight: 114 kg

DRUGS (22)
  1. ACYCLOVIR [Suspect]
     Active Substance: ACYCLOVIR
     Indication: Steroid dependence
     Dosage: 500 MICROGRAM, QD
     Route: 065
  2. AMLODIPINE [Suspect]
     Active Substance: AMLODIPINE BESYLATE
     Indication: Blood pressure increased
     Dosage: 10 MILLIGRAM, QD
  3. CALCIUM CARBONATE [Suspect]
     Active Substance: CALCIUM CARBONATE
     Indication: Steroid dependence
     Dosage: 500 MICROGRAM, BID
     Route: 065
  4. HYDROXYUREA [Suspect]
     Active Substance: HYDROXYUREA
     Indication: Metabolic disorder
     Dosage: UNK UNK, QD
     Route: 065
  5. PANTOPRAZOLE [Suspect]
     Active Substance: PANTOPRAZOLE
     Indication: Eosinophilic granulomatosis with polyangiitis
     Dosage: 40 MILLIGRAM, QD
     Route: 065
  6. PANTOPRAZOLE [Suspect]
     Active Substance: PANTOPRAZOLE
     Dosage: 50 MILLIGRAM, QD
     Route: 065
  7. PREDNISONE [Suspect]
     Active Substance: PREDNISONE
     Indication: Eosinophilic granulomatosis with polyangiitis
     Dosage: 50 MILLIGRAM, QD
     Route: 065
  8. PREDNISONE [Suspect]
     Active Substance: PREDNISONE
     Indication: Asthma
     Dosage: 40 MILLIGRAM, QD
     Route: 065
  9. ALBUTEROL [Suspect]
     Active Substance: ALBUTEROL
     Indication: Asthma
     Dosage: 6 DOSAGE FORM, QID
     Route: 065
  10. ALBUTEROL [Suspect]
     Active Substance: ALBUTEROL
     Indication: Product used for unknown indication
     Dosage: 4 DOSAGE FORM
     Route: 065
  11. ALBUTEROL [Suspect]
     Active Substance: ALBUTEROL
     Dosage: 1000 MICROGRAM, QD
     Route: 065
  12. ALBUTEROL [Suspect]
     Active Substance: ALBUTEROL
     Dosage: 100 MICROGRAM, QD
     Route: 065
  13. ALBUTEROL [Suspect]
     Active Substance: ALBUTEROL
     Dosage: 100 MICROGRAM
     Route: 065
  14. VENLAFAXINE [Suspect]
     Active Substance: VENLAFAXINE HYDROCHLORIDE
     Indication: Depression
     Dosage: 112 MILLIGRAM
     Route: 065
  15. BACTRIM [Suspect]
     Active Substance: SULFAMETHOXAZOLE\TRIMETHOPRIM
     Indication: Steroid dependence
     Dosage: 3 DOSAGE FORM, Q.WK.
     Route: 065
  16. BUDESONIDE [Suspect]
     Active Substance: BUDESONIDE
     Indication: Asthma
     Dosage: 4 DOSAGE FORM, BID
     Route: 065
  17. BUDESONIDE [Suspect]
     Active Substance: BUDESONIDE
     Indication: Product used for unknown indication
     Dosage: 2 DOSAGE FORM, BID
  18. BUDESONIDE [Suspect]
     Active Substance: BUDESONIDE
     Dosage: 2 DOSAGE FORM, BID
     Route: 065
  19. FLOVENT [Suspect]
     Active Substance: FLUTICASONE PROPIONATE
     Indication: Product used for unknown indication
     Dosage: 250 MICROGRAM, BID
     Route: 065
  20. VITAMIN D [Suspect]
     Active Substance: VITAMIN D NOS
     Indication: Steroid dependence
     Dosage: 1000 MICROGRAM, QD
     Route: 065
  21. VITAMIN D [Suspect]
     Active Substance: VITAMIN D NOS
     Indication: Steroid dependence
     Dosage: 1000 MICROGRAM, QD
     Route: 065
  22. ERGOCALCIFEROL [Suspect]
     Active Substance: ERGOCALCIFEROL
     Indication: Steroid dependence
     Dosage: 1 EVERY 1 DAYS
     Route: 065

REACTIONS (10)
  - Sleep disorder due to a general medical condition [Not Recovered/Not Resolved]
  - Loss of personal independence in daily activities [Not Recovered/Not Resolved]
  - Antineutrophil cytoplasmic antibody positive [Not Recovered/Not Resolved]
  - Disease recurrence [Not Recovered/Not Resolved]
  - Asthma [Not Recovered/Not Resolved]
  - Nasal polyps [Not Recovered/Not Resolved]
  - Full blood count abnormal [Not Recovered/Not Resolved]
  - Dyspnoea [Not Recovered/Not Resolved]
  - Wheezing [Not Recovered/Not Resolved]
  - Therapeutic product effect incomplete [Not Recovered/Not Resolved]
